FAERS Safety Report 4843674-3 (Version None)
Quarter: 2005Q4

REPORT INFORMATION
  Report Type: 
  Country: None (occurrence: None)
  Receive Date: 20051202
  Receipt Date: 20051121
  Transmission Date: 20060501
  Serious: Yes (Hospitalization)
  Sender: FDA-Public Use
  Company Number: 2005SE06765

PATIENT
  Age: 7299 Day
  Sex: Male

DRUGS (4)
  1. NEXIUM [Suspect]
     Route: 048
     Dates: start: 20051015, end: 20051103
  2. BRUFEN [Suspect]
     Indication: TENDONITIS
     Route: 048
     Dates: start: 20051015, end: 20051103
  3. NOVORAPID [Concomitant]
     Indication: DIABETES MELLITUS INSULIN-DEPENDENT
     Route: 058
     Dates: start: 20030101
  4. PROTAPHANE [Concomitant]
     Indication: DIABETES MELLITUS INSULIN-DEPENDENT
     Route: 058
     Dates: start: 20030101

REACTIONS (3)
  - ANGIONEUROTIC OEDEMA [None]
  - GENERALISED ERYTHEMA [None]
  - LEUKOCYTOSIS [None]
